FAERS Safety Report 4649141-4 (Version None)
Quarter: 2005Q2

REPORT INFORMATION
  Report Type: 
  Country: None (occurrence: None)
  Receive Date: 20050427
  Receipt Date: 20050408
  Transmission Date: 20051028
  Serious: Yes (Other)
  Sender: FDA-Public Use
  Company Number: US_0504115384

PATIENT
  Age: 78 Year
  Sex: Female
  Weight: 58 kg

DRUGS (4)
  1. FORTEO [Suspect]
     Indication: BONE DENSITY DECREASED
     Dosage: 20 UG DAY
     Dates: start: 20050201
  2. DILANTIN [Concomitant]
  3. ACCOLATE [Concomitant]
  4. FLUTICASONE W/SAMETEROL [Concomitant]

REACTIONS (6)
  - AMNESIA [None]
  - CONVULSION [None]
  - INCOHERENT [None]
  - LOSS OF CONSCIOUSNESS [None]
  - PHARMACEUTICAL PRODUCT COMPLAINT [None]
  - TREATMENT NONCOMPLIANCE [None]
